FAERS Safety Report 12708146 (Version 3)
Quarter: 2016Q4

REPORT INFORMATION
  Report Type: Report from Study
  Country: US (occurrence: US)
  Receive Date: 20160901
  Receipt Date: 20161122
  Transmission Date: 20170207
  Serious: Yes (Hospitalization, Other)
  Sender: FDA-Public Use
  Company Number: US-BAYER-2016-166240

PATIENT
  Age: 75 Year
  Sex: Female
  Weight: 84 kg

DRUGS (4)
  1. ADEMPAS [Suspect]
     Active Substance: RIOCIGUAT
     Indication: PULMONARY ARTERIAL HYPERTENSION
     Dosage: 2.5 MG, TID
     Route: 048
  2. DILTIAZEM. [Concomitant]
     Active Substance: DILTIAZEM
  3. ADEMPAS [Suspect]
     Active Substance: RIOCIGUAT
     Indication: PULMONARY ARTERIAL HYPERTENSION
     Dosage: UNK
     Dates: start: 20140407
  4. COUMADIN [Concomitant]
     Active Substance: WARFARIN SODIUM

REACTIONS (6)
  - Small intestinal obstruction [None]
  - Hypertension [None]
  - Anaemia [None]
  - Hypokalaemia [None]
  - Intestinal obstruction [Recovered/Resolved]
  - Cardiac output decreased [None]
